FAERS Safety Report 5337914-4 (Version None)
Quarter: 2007Q2

REPORT INFORMATION
  Report Type: 
  Country: None (occurrence: None)
  Receive Date: 20070327
  Receipt Date: 20061201
  Transmission Date: 20071010
  Serious: No
  Sender: FDA-Public Use
  Company Number: 232773

PATIENT
  Age: 70 Year
  Sex: Male
  Weight: 85.7 kg

DRUGS (1)
  1. AVASTIN [Suspect]
     Indication: COLON CANCER
     Dosage: 409 MG, Q2W; INTRAVENOUS
     Route: 042
     Dates: start: 20060503

REACTIONS (1)
  - BLOOD THYROID STIMULATING HORMONE INCREASED [None]
